FAERS Safety Report 4637129-9 (Version None)
Quarter: 2005Q2

REPORT INFORMATION
  Report Type: 
  Country: None (occurrence: None)
  Receive Date: 20050325
  Receipt Date: 20041130
  Transmission Date: 20051028
  Serious: No
  Sender: FDA-Public Use
  Company Number: USA040875194

PATIENT
  Age: 73 Year
  Sex: Female
  Weight: 56 kg

DRUGS (4)
  1. FORTEO [Suspect]
     Indication: OSTEOPOROSIS
     Dosage: 20UG/1 DAY
     Dates: start: 20040501
  2. ACETAMINOPHEN W/PROPPXYPHENE [Concomitant]
  3. SENIOR VITAMIN [Concomitant]
  4. TUMS (CALCIUM CARBONATE) [Concomitant]

REACTIONS (7)
  - ANOREXIA [None]
  - ARTHRALGIA [None]
  - BONE PAIN [None]
  - PARAESTHESIA [None]
  - SWELLING [None]
  - SWELLING FACE [None]
  - WEIGHT DECREASED [None]
